FAERS Safety Report 7590060-1 (Version None)
Quarter: 2011Q3

REPORT INFORMATION
  Report Type: 
  Country: None (occurrence: None)
  Receive Date: 20110705
  Receipt Date: 20110622
  Transmission Date: 20111222
  Serious: Yes (Hospitalization)
  Sender: FDA-Public Use
  Company Number: B0489660A

PATIENT
  Sex: Female
  Weight: 53.7 kg

DRUGS (5)
  1. LAPATINIB [Suspect]
     Dosage: 1250MG PER DAY
     Route: 048
     Dates: start: 20070913
  2. RANITIDINE [Concomitant]
     Dosage: 300MG PER DAY
     Route: 048
     Dates: start: 20070401
  3. ZOLPIDEM [Concomitant]
     Indication: PROPHYLAXIS
     Dosage: 10MG PER DAY
     Route: 048
     Dates: start: 20070401
  4. CAPECITABINE [Suspect]
     Dosage: 1000MGM2 TWICE PER DAY
     Route: 048
     Dates: start: 20070913
  5. PROPRANOLOL HCL [Concomitant]
     Indication: TACHYCARDIA
     Dosage: 80MG PER DAY
     Route: 048
     Dates: start: 20030101

REACTIONS (3)
  - DIARRHOEA [None]
  - SYNCOPE [None]
  - VOMITING [None]
